FAERS Safety Report 7625322 (Version 5)
Quarter: 2013Q2

REPORT INFORMATION
  Report Type: Spontaneous
  Country: US (occurrence: US)
  Receive Date: 20101012
  Receipt Date: 20130410
  Transmission Date: 20140414
  Serious: Yes (Death)
  Sender: FDA-Public Use
  Company Number: US-BAYER-201035948NA

PATIENT
  Sex: Female
  Weight: 108.39 kg

DRUGS (53)
  1. MAGNEVIST [Suspect]
     Indication: IMAGING PROCEDURE
     Dosage: UNK
     Dates: start: 20030908, end: 20030908
  2. MAGNEVIST [Suspect]
     Indication: NUCLEAR MAGNETIC RESONANCE IMAGING ABDOMINAL
  3. GADOLINIUM IN UNSPECIFIED DRUG [Suspect]
     Indication: IMAGING PROCEDURE
     Dosage: UNK
     Dates: start: 20020215, end: 20020215
  4. OMNISCAN [Suspect]
     Indication: IMAGING PROCEDURE
     Dosage: 40 ML, ONCE
     Route: 042
     Dates: start: 20020215, end: 20020215
  5. OMNISCAN [Suspect]
     Indication: ANGIOGRAM
     Dosage: 20 ML, ONCE
     Route: 042
     Dates: start: 20030815, end: 20030815
  6. OMNISCAN [Suspect]
     Indication: NUCLEAR MAGNETIC RESONANCE IMAGING
     Dosage: UNK
     Route: 042
     Dates: start: 20030924, end: 20030924
  7. OMNISCAN [Suspect]
     Indication: ANGIOPLASTY
     Dosage: UNK
     Route: 042
     Dates: start: 20031030, end: 20031030
  8. OMNISCAN [Suspect]
     Indication: VENOGRAM
     Dosage: 30 ML, ONCE
     Route: 042
     Dates: start: 20040205, end: 20040205
  9. OPTIMARK [Suspect]
     Indication: IMAGING PROCEDURE
  10. ATIVAN [Concomitant]
     Indication: ANXIETY
     Dosage: 1 MG, BID
     Route: 048
  11. ASPIRIN [ACETYLSALICYLIC ACID] [Concomitant]
     Dosage: 325 MG, QD
     Route: 048
  12. FERROUS SULFATE [Concomitant]
     Dosage: 300 MG, QD
     Route: 048
  13. NEURONTIN [Concomitant]
     Indication: NEURALGIA
     Dosage: 300 MG, QOD
     Route: 048
  14. CYTOMEL [Concomitant]
     Dosage: 50 ?G, QD
     Route: 048
  15. NEXIUM [Concomitant]
     Dosage: 40 MG, QD
     Route: 048
  16. PREDNISONE [Concomitant]
     Route: 048
  17. MIDODRINE [Concomitant]
     Dosage: 10 MG, QID
     Route: 048
  18. AMBIEN [Concomitant]
     Indication: INSOMNIA
     Dosage: 5 MG, HS
     Route: 048
  19. RENAGEL [SEVELAMER] [Concomitant]
     Dosage: 400 MG, WITH MEALS
  20. NEPHRO-VITE [VITAMINS NOS] [Concomitant]
     Dosage: 1 DF, QD
     Route: 048
  21. NIFEREX [POLYSACCHARIDE-IRON COMPLEX] [Concomitant]
  22. EPOGEN [Concomitant]
     Dosage: 15000 U, TIW
     Route: 058
  23. CALCITROL [Concomitant]
     Dosage: 0.25 ?G, QD
     Route: 048
  24. NPH INSULIN [Concomitant]
     Indication: DIABETES MELLITUS
     Dosage: 20 UNITS Q AM, 15 UNITS Q PM
     Route: 058
  25. NPH INSULIN [Concomitant]
     Indication: DIABETES MELLITUS
     Dosage: 15 UNK, QD IN PM
     Route: 058
  26. PROTONIX [Concomitant]
     Dosage: 40 MG, QD
     Route: 048
  27. DILAUDID [Concomitant]
     Route: 042
  28. AMIKACIN [Concomitant]
     Dosage: 1200 MG
     Route: 042
  29. PANCRELIPASE [Concomitant]
     Dosage: 2 DOSE TABLET BEFORE MEALS
     Route: 048
  30. LINEZOLID [Concomitant]
     Dosage: 600 MG, BID
     Route: 042
  31. VITAMIN C [ASCORBIC ACID] [Concomitant]
  32. FENTANYL [Concomitant]
     Indication: WOUND COMPLICATION
     Dosage: 150 MCG Q 72 HOURS
     Route: 061
  33. DURAGESIC [Concomitant]
     Dosage: 100 MCG EVERY 72 HOURS
  34. ALBUTEROL INHALER [Concomitant]
  35. ATROVENT [Concomitant]
  36. ANZEMET [Concomitant]
  37. BENADRYL [Concomitant]
  38. TYLENOL [PARACETAMOL] [Concomitant]
  39. DARBEPOETIN ALFA [Concomitant]
  40. GABAPENTIN [Concomitant]
  41. LIOTHYSONE [Concomitant]
  42. OXYCODONE [Concomitant]
  43. K-DUR [Concomitant]
  44. CALCITRIOL [Concomitant]
  45. FOLATE SODIUM [Concomitant]
  46. FLAGYL [Concomitant]
  47. GATIFLOXACIN [Concomitant]
  48. SODIUM POLYSTYRENE SULFONATE [Concomitant]
  49. CHLORAL HYDRATE [Concomitant]
  50. NALOXONE [Concomitant]
  51. MEROPENEM [Concomitant]
  52. PHOSLO [Concomitant]
  53. HEPARIN [Concomitant]

REACTIONS (27)
  - Nephrogenic systemic fibrosis [Fatal]
  - Fibrosis [Fatal]
  - Pain [Fatal]
  - Skin burning sensation [Fatal]
  - Joint contracture [Fatal]
  - Extremity contracture [Fatal]
  - Muscle contracture [Fatal]
  - Leg amputation [Fatal]
  - General physical health deterioration [Fatal]
  - Deformity [Fatal]
  - Pruritus [Fatal]
  - Ulcer [Fatal]
  - Pain in extremity [Fatal]
  - Oedema peripheral [Fatal]
  - Oedema peripheral [Fatal]
  - Skin discolouration [Fatal]
  - Joint contracture [Fatal]
  - Parakeratosis [Fatal]
  - Hyperkeratosis [Fatal]
  - Skin hypertrophy [Fatal]
  - Skin induration [Fatal]
  - Skin fibrosis [Fatal]
  - Wound [Fatal]
  - Skin lesion [Fatal]
  - Discomfort [Fatal]
  - Emotional disorder [None]
  - Anhedonia [None]
